FAERS Safety Report 5195024-3 (Version None)
Quarter: 2006Q4

REPORT INFORMATION
  Report Type: 
  Country: None (occurrence: None)
  Receive Date: 20061229
  Receipt Date: 20061222
  Transmission Date: 20070319
  Serious: Yes (Hospitalization)
  Sender: FDA-Public Use
  Company Number: DE-ABBOTT-06P-062-0354218-00

PATIENT

DRUGS (2)
  1. ZEMPLAR [Suspect]
     Indication: HYPERPARATHYROIDISM SECONDARY
     Route: 042
  2. HEPARIN [Suspect]
     Indication: DIALYSIS

REACTIONS (4)
  - ARACHNOID CYST [None]
  - BRAIN COMPRESSION [None]
  - BRAIN OEDEMA [None]
  - EPILEPSY [None]
